FAERS Safety Report 26203704 (Version 1)
Quarter: 2025Q4

REPORT INFORMATION
  Report Type: Spontaneous
  Country: US (occurrence: US)
  Receive Date: 20251226
  Receipt Date: 20251226
  Transmission Date: 20260117
  Serious: Yes (Hospitalization, Other)
  Sender: ADVANZ PHARMA
  Company Number: US-ADVANZ PHARMA-202512011304

PATIENT

DRUGS (36)
  1. HYDROXYCHLOROQUINE SULFATE [Suspect]
     Active Substance: HYDROXYCHLOROQUINE SULFATE
     Indication: Lupus nephritis
     Dosage: 200 MG, BID (2 TIMES PER DAY)
     Route: 048
     Dates: start: 20250723
  2. HYDROXYCHLOROQUINE SULFATE [Suspect]
     Active Substance: HYDROXYCHLOROQUINE SULFATE
     Indication: Systemic lupus erythematosus
  3. IPTACOPAN [Suspect]
     Active Substance: IPTACOPAN
     Indication: Lupus nephritis
     Dosage: UNK
     Route: 048
     Dates: start: 20250925, end: 20251028
  4. MYCOPHENOLATE MOFETIL [Suspect]
     Active Substance: MYCOPHENOLATE MOFETIL
     Indication: Lupus nephritis
     Dosage: 500 MG, BID
     Route: 048
     Dates: start: 20250705, end: 20250807
  5. MYCOPHENOLATE MOFETIL [Suspect]
     Active Substance: MYCOPHENOLATE MOFETIL
     Indication: Systemic lupus erythematosus
     Dosage: 500 MG, BID ((2 TABLET DOSING UNIT 2 TIMES PER DAY)
     Route: 048
     Dates: start: 20250808
  6. MEPRON [Suspect]
     Active Substance: ATOVAQUONE
     Indication: Product used for unknown indication
     Dosage: UNK
     Route: 065
     Dates: start: 20250723
  7. PROTONIX [Suspect]
     Active Substance: PANTOPRAZOLE SODIUM
     Indication: Product used for unknown indication
     Dosage: 40 MG
     Route: 065
     Dates: start: 20250723
  8. BUMEX [Suspect]
     Active Substance: BUMETANIDE
     Indication: Product used for unknown indication
     Dosage: UNK
     Route: 065
     Dates: start: 20250802
  9. PROCARDIA [Suspect]
     Active Substance: NIFEDIPINE
     Indication: Product used for unknown indication
     Dosage: UNK
     Route: 065
     Dates: start: 20250808, end: 20251028
  10. ZITHROMAX [Suspect]
     Active Substance: AZITHROMYCIN DIHYDRATE
     Indication: Product used for unknown indication
     Dosage: 250 MG
     Route: 065
     Dates: start: 20250925
  11. PREDNISOLONE [Suspect]
     Active Substance: PREDNISOLONE
     Indication: Product used for unknown indication
     Dosage: UNK
     Route: 065
     Dates: start: 20250926
  12. NIFEDIPINE [Suspect]
     Active Substance: NIFEDIPINE
     Indication: Product used for unknown indication
     Dosage: 60 MG
     Route: 065
     Dates: start: 20251028
  13. PREDNISONE [Suspect]
     Active Substance: PREDNISONE
     Indication: Lupus nephritis
     Dosage: 10 MG, QD (6 TABLET DOSING UNIT DAILY)
     Route: 048
     Dates: start: 20250724, end: 20250729
  14. PREDNISONE [Suspect]
     Active Substance: PREDNISONE
     Dosage: 10 MG, QD (5.5 TABLET DOSING UNIT DAILY)
     Route: 048
     Dates: start: 20250730, end: 20250805
  15. PREDNISONE [Suspect]
     Active Substance: PREDNISONE
     Dosage: 10 MG, QD (4.5 TABLET DOSING UNIT DAILY)
     Route: 048
     Dates: start: 20250806, end: 20250807
  16. PREDNISONE [Suspect]
     Active Substance: PREDNISONE
     Dosage: 10 MG, QD
     Route: 048
     Dates: start: 20250808, end: 20250925
  17. PREDNISONE [Suspect]
     Active Substance: PREDNISONE
     Dosage: 10 MG, QD (4 TABLET DOSING UNIT DAILY)
     Route: 048
     Dates: start: 20250813, end: 20250818
  18. PREDNISONE [Suspect]
     Active Substance: PREDNISONE
     Dosage: 10 MG (3.5 TABLET DOSING UNIT DAILY)
     Route: 048
     Dates: start: 20250820, end: 20250826
  19. PREDNISONE [Suspect]
     Active Substance: PREDNISONE
     Dosage: 10 MG, QD (3 TABLET DOSING UNIT DAILY)
     Route: 048
     Dates: start: 20250827, end: 20250902
  20. PREDNISONE [Suspect]
     Active Substance: PREDNISONE
     Dosage: 10 MG, QD (2.5 TABLET DOSING UNIT DAILY)
     Route: 048
     Dates: start: 20250903, end: 20250909
  21. PREDNISONE [Suspect]
     Active Substance: PREDNISONE
     Dosage: 10 MG, QD (2 TABLET DOSING UNIT DAILY)
     Route: 048
     Dates: start: 20250910, end: 20250916
  22. PREDNISONE [Suspect]
     Active Substance: PREDNISONE
     Dosage: 10 MG, QD (1.5 TABLET DOSING UNIT DAILY)
     Route: 048
     Dates: start: 20250917, end: 20250923
  23. PREDNISONE [Suspect]
     Active Substance: PREDNISONE
     Dosage: 10 MG, QD (1 TABLET DOSING UNIT DAILY)
     Route: 048
     Dates: start: 20250924, end: 20250930
  24. PREDNISONE [Suspect]
     Active Substance: PREDNISONE
     Dosage: 40 MG, QD (DAILY)
     Route: 048
     Dates: start: 20250926
  25. PREDNISONE [Suspect]
     Active Substance: PREDNISONE
     Dosage: 5 MG, QD (8 TABLET DOSING UNIT DAILY)
     Route: 048
     Dates: start: 20250926, end: 20251008
  26. PREDNISONE [Suspect]
     Active Substance: PREDNISONE
     Dosage: 5 MG, QD (1 TABLET DOSING UNIT DAILY)
     Route: 048
     Dates: start: 20251001, end: 20251008
  27. PREDNISONE [Suspect]
     Active Substance: PREDNISONE
     Dosage: 5 MG, QD (6 TABLET DOSING UNIT DAILY)
     Route: 048
     Dates: start: 20251009, end: 20251028
  28. PREDNISONE [Suspect]
     Active Substance: PREDNISONE
     Dosage: 5 MG, QD (4 TABLET DOSING UNIT DAILY)
     Route: 048
     Dates: start: 20251028
  29. BEXSERO [Suspect]
     Active Substance: MENINGOCOCCAL GROUP B VACCINE
     Indication: Prophylaxis
     Dosage: UNK
     Route: 065
     Dates: start: 20250813
  30. MENVEO [Suspect]
     Active Substance: MENINGOCOCCAL (GROUPS A, C, Y, W) CONJUGATE VACCINE
     Indication: Prophylaxis
     Dosage: UNK (INJECTION KIT)
     Route: 065
     Dates: start: 20250813
  31. PNEUMOCOCCAL CONJUGATE VACCINE NOS [Suspect]
     Active Substance: PNEUMOCOCCAL CONJUGATE VACCINE
     Indication: Prophylaxis
     Dosage: UNK
     Route: 065
     Dates: start: 20250813
  32. PNEUMOCOCCAL CONJUGATE VACCINE NOS [Suspect]
     Active Substance: PNEUMOCOCCAL CONJUGATE VACCINE
     Indication: Prophylaxis
  33. BEXSERO [Suspect]
     Active Substance: MENINGOCOCCAL GROUP B VACCINE
     Indication: Prophylaxis
     Dosage: UNK
     Route: 065
     Dates: start: 20250917
  34. HAEMOPHILUS INFLUENZAE TYPE B [Suspect]
     Active Substance: HAEMOPHILUS INFLUENZAE TYPE B
     Indication: Prophylaxis
     Dosage: UNK
     Route: 065
     Dates: start: 20250917
  35. ZOFRAN [Concomitant]
     Active Substance: ONDANSETRON HYDROCHLORIDE
     Indication: Product used for unknown indication
     Dosage: UNK
     Route: 065
     Dates: start: 20250705
  36. NORMODYNE [Concomitant]
     Active Substance: LABETALOL HYDROCHLORIDE
     Indication: Product used for unknown indication
     Dosage: 300 MG
     Route: 065
     Dates: start: 20250705

REACTIONS (4)
  - Condition aggravated [Not Recovered/Not Resolved]
  - Acute kidney injury [Not Recovered/Not Resolved]
  - Condition aggravated [Not Recovered/Not Resolved]
  - Leukopenia [Not Recovered/Not Resolved]

NARRATIVE: CASE EVENT DATE: 20251028
